FAERS Safety Report 10031773 (Version 4)
Quarter: 2014Q2

REPORT INFORMATION
  Report Type: Report from Study
  Country: NL (occurrence: NL)
  Receive Date: 20140324
  Receipt Date: 20140606
  Transmission Date: 20141212
  Serious: Yes (Other)
  Sender: FDA-Public Use
  Company Number: NL-CELGENEUS-114-21880-14031333

PATIENT
  Age: 81 Year
  Sex: Female
  Weight: 74 kg

DRUGS (5)
  1. REVLIMID [Suspect]
     Indication: PLASMA CELL MYELOMA
     Route: 048
     Dates: start: 20140228
  2. REVLIMID [Suspect]
     Route: 048
     Dates: start: 20100421
  3. MELPHALAN [Suspect]
     Indication: PLASMA CELL MYELOMA
     Route: 065
     Dates: start: 20100421
  4. MELPHALAN [Suspect]
     Route: 065
     Dates: end: 20110110
  5. PREDNISONE [Suspect]
     Indication: PLASMA CELL MYELOMA
     Route: 065
     Dates: start: 20100421, end: 20110110

REACTIONS (1)
  - Breast cancer [Not Recovered/Not Resolved]
